FAERS Safety Report 5834425-4 (Version None)
Quarter: 2008Q3

REPORT INFORMATION
  Report Type: 
  Country: None (occurrence: None)
  Receive Date: 20080805
  Receipt Date: 20080724
  Transmission Date: 20090109
  Serious: Yes (Hospitalization)
  Sender: FDA-Public Use
  Company Number: JP-PFIZER INC-2008057471

PATIENT
  Sex: Female

DRUGS (15)
  1. AMLODIPINE BESYLATE [Suspect]
     Indication: HYPERTENSION
     Dosage: DAILY DOSE:5MG
     Route: 048
     Dates: start: 20080403, end: 20080627
  2. HALCION [Concomitant]
     Route: 048
  3. SELBEX [Concomitant]
     Indication: DUODENAL ULCER
     Dosage: DAILY DOSE:150MG
     Route: 048
  4. SELBEX [Concomitant]
     Indication: REFLUX OESOPHAGITIS
  5. ADALAT [Concomitant]
     Indication: HYPERTENSION
     Dosage: DAILY DOSE:10MG
     Route: 048
  6. FAMOTIDINE [Concomitant]
     Indication: DUODENAL ULCER
     Dosage: DAILY DOSE:20MG
     Route: 048
  7. FAMOTIDINE [Concomitant]
     Indication: REFLUX OESOPHAGITIS
  8. LASIX [Concomitant]
     Indication: HYPERTENSION
     Dosage: DAILY DOSE:20MG
     Route: 048
     Dates: start: 20080620
  9. LASIX [Concomitant]
     Indication: OEDEMA
  10. AMARYL [Concomitant]
     Indication: DIABETES MELLITUS
     Dosage: DAILY DOSE:2MG
     Route: 048
     Dates: start: 20080616
  11. OMEPRAZOLE [Concomitant]
     Indication: DUODENAL ULCER
     Dosage: DAILY DOSE:20MG
     Route: 048
     Dates: start: 20080609, end: 20080619
  12. OMEPRAZOLE [Concomitant]
     Indication: REFLUX OESOPHAGITIS
  13. TOWARAT [Concomitant]
     Indication: HYPERTENSION
     Dosage: DAILY DOSE:20MG
     Route: 048
     Dates: end: 20080402
  14. HARNIN [Concomitant]
     Indication: POLLAKIURIA
     Dosage: DAILY DOSE:600MG
     Route: 048
  15. HARNIN [Concomitant]
     Indication: SOMATOFORM DISORDER

REACTIONS (2)
  - BLISTER [None]
  - OEDEMA [None]
